FAERS Safety Report 9345683 (Version 1)
Quarter: 2013Q2

REPORT INFORMATION
  Report Type: Spontaneous
  Country: MX (occurrence: MX)
  Receive Date: 20130613
  Receipt Date: 20130613
  Transmission Date: 20140414
  Serious: Yes (Death, Other)
  Sender: FDA-Public Use
  Company Number: PHHY2013MX059933

PATIENT
  Age: 73 Year
  Sex: Male
  Weight: 66 kg

DRUGS (2)
  1. GLIVEC [Suspect]
     Indication: GASTROINTESTINAL STROMAL TUMOUR
     Dosage: UNK UKN, UNK
     Dates: start: 200501, end: 201002
  2. GLIVEC [Suspect]
     Dosage: 4 DF (4X100 MG)
     Route: 048
     Dates: start: 20120327, end: 20130519

REACTIONS (3)
  - Death [Fatal]
  - Gastrointestinal stromal tumour [Unknown]
  - Malignant neoplasm progression [Unknown]
